FAERS Safety Report 10079046 (Version 1)
Quarter: 2014Q2

REPORT INFORMATION
  Report Type: Spontaneous
  Country: US (occurrence: US)
  Receive Date: 20140415
  Receipt Date: 20140415
  Transmission Date: 20141212
  Serious: No
  Sender: FDA-Public Use
  Company Number: 2014SP001526

PATIENT
  Sex: Female

DRUGS (21)
  1. VANCOMYCIN [Suspect]
     Indication: PRODUCT USED FOR UNKNOWN INDICATION
  2. DOXYCYCLINE [Suspect]
     Indication: PRODUCT USED FOR UNKNOWN INDICATION
  3. ERYTHROMYCIN [Suspect]
     Indication: PRODUCT USED FOR UNKNOWN INDICATION
  4. CIPROFLOXACIN [Suspect]
     Indication: PRODUCT USED FOR UNKNOWN INDICATION
  5. AZITHROMYCIN [Suspect]
     Indication: PRODUCT USED FOR UNKNOWN INDICATION
  6. PENICILLIN /00001805/ [Suspect]
     Indication: PRODUCT USED FOR UNKNOWN INDICATION
  7. KETOPROFEN [Suspect]
     Indication: PRODUCT USED FOR UNKNOWN INDICATION
  8. TESSALON PERLE [Suspect]
     Indication: PRODUCT USED FOR UNKNOWN INDICATION
  9. BACTRIM [Suspect]
     Indication: PRODUCT USED FOR UNKNOWN INDICATION
  10. BACLOFEN [Concomitant]
  11. LYRICA [Concomitant]
  12. DEPO-PROVERA [Concomitant]
  13. REBIF [Concomitant]
  14. BENADRYL /00000402/ [Concomitant]
  15. VISTARIL /00058402/ [Concomitant]
  16. MECLIZINE /00072801/ [Concomitant]
  17. FOSAMAX [Concomitant]
  18. IMITREX /01044801/ [Concomitant]
  19. VENLAFAXINE [Concomitant]
  20. CHLORHEXIDINE GLUCONATE [Concomitant]
  21. MELATONIN [Concomitant]

REACTIONS (1)
  - Drug hypersensitivity [Unknown]
